FAERS Safety Report 7461558-1 (Version None)
Quarter: 2011Q2

REPORT INFORMATION
  Report Type: 
  Country: None (occurrence: None)
  Receive Date: 20110506
  Receipt Date: 20110421
  Transmission Date: 20111010
  Serious: Yes (Other)
  Sender: FDA-Public Use
  Company Number: US-JNJFOC-20110411906

PATIENT
  Sex: Female

DRUGS (2)
  1. ROGAINE (FOR WOMEN) [Suspect]
     Route: 067
  2. ROGAINE (FOR WOMEN) [Suspect]
     Indication: HAIR GROWTH ABNORMAL
     Route: 067

REACTIONS (5)
  - INCORRECT ROUTE OF DRUG ADMINISTRATION [None]
  - VULVOVAGINAL PAIN [None]
  - OFF LABEL USE [None]
  - CHEMICAL INJURY [None]
  - VULVOVAGINAL ERYTHEMA [None]
